FAERS Safety Report 10534349 (Version 2)
Quarter: 2015Q4

REPORT INFORMATION
  Report Type: Spontaneous
  Country: US (occurrence: US)
  Receive Date: 20141022
  Receipt Date: 20151021
  Transmission Date: 20160304
  Serious: No
  Sender: FDA-Public Use
  Company Number: US-BAUSCH-SYM-2014-23414

PATIENT
  Sex: Female

DRUGS (4)
  1. WELLBUTRIN XL [Suspect]
     Active Substance: BUPROPION HYDROCHLORIDE
     Indication: DEPRESSION
     Dates: start: 2013, end: 2014
  2. WELLBUTRIN XL [Suspect]
     Active Substance: BUPROPION HYDROCHLORIDE
     Dosage: 1 TABLET DAILY, THEN TAPERED OFF TO 1 TABLET EVERY OTHER DAY FOR 2 WEEKS BEFORE DISCONTINUED.
  3. WELLBUTRIN XL [Suspect]
     Active Substance: BUPROPION HYDROCHLORIDE
     Dates: start: 201501
  4. WELLBUTRIN XL [Suspect]
     Active Substance: BUPROPION HYDROCHLORIDE
     Dates: start: 2015

REACTIONS (12)
  - Paraesthesia [Unknown]
  - Fatigue [Unknown]
  - Increased appetite [Unknown]
  - Apathy [Not Recovered/Not Resolved]
  - Pain [Unknown]
  - Daydreaming [Unknown]
  - Agitation [Unknown]
  - Hyperhidrosis [Not Recovered/Not Resolved]
  - Anger [Unknown]
  - Feeling hot [Not Recovered/Not Resolved]
  - Dizziness [Unknown]
  - Hypoaesthesia [Unknown]

NARRATIVE: CASE EVENT DATE: 2015
